FAERS Safety Report 8874144 (Version 2)
Quarter: 2013Q1

REPORT INFORMATION
  Report Type: Report from Study
  Country: JP (occurrence: JP)
  Receive Date: 20121031
  Receipt Date: 20130208
  Transmission Date: 20140127
  Serious: Yes (Other)
  Sender: FDA-Public Use
  Company Number: JP-009507513-1208JPN006863

PATIENT
  Age: 62 Year
  Sex: Female
  Weight: 55 kg

DRUGS (6)
  1. PEGINTRON [Suspect]
     Indication: CHRONIC HEPATITIS C
     Dosage: 1.5 MICROGRAM PER KILOGRAM, QW
     Route: 058
     Dates: start: 20120406, end: 20120511
  2. REBETOL [Suspect]
     Indication: CHRONIC HEPATITIS C
     Dosage: 400 MG, QD
     Route: 048
     Dates: start: 20120406, end: 20120419
  3. REBETOL [Suspect]
     Dosage: 200 MG, QD
     Route: 048
     Dates: start: 20120420, end: 20120422
  4. TELAVIC [Suspect]
     Indication: CHRONIC HEPATITIS C
     Dosage: 750 MG, TID
     Route: 048
     Dates: start: 20120406, end: 20120419
  5. TELAVIC [Suspect]
     Dosage: 500 MG, TID
     Route: 048
     Dates: start: 20120420, end: 20120510
  6. TELAVIC [Suspect]
     Dosage: 250 MG, TID
     Route: 048
     Dates: start: 20120511, end: 20120517

REACTIONS (1)
  - Haemoglobin decreased [Recovered/Resolved]
